FAERS Safety Report 19139696 (Version 1)
Quarter: 2021Q2

REPORT INFORMATION
  Report Type: Spontaneous
  Country: US (occurrence: US)
  Receive Date: 20210415
  Receipt Date: 20210415
  Transmission Date: 20210717
  Serious: Yes (Hospitalization)
  Sender: FDA-Public Use
  Company Number: None

PATIENT
  Age: 71 Year
  Sex: Male

DRUGS (1)
  1. WARFARIN (WARFARIN NA (GOLDEN STATE) 5MG TAB) [Suspect]
     Active Substance: WARFARIN SODIUM
     Indication: ATRIAL FIBRILLATION
     Dates: start: 20090901, end: 20210207

REACTIONS (8)
  - Anaemia [None]
  - Melaena [None]
  - Haemorrhage [None]
  - Haemorrhoids [None]
  - Diverticulum [None]
  - Dizziness [None]
  - Dyspnoea [None]
  - Anticoagulation drug level above therapeutic [None]

NARRATIVE: CASE EVENT DATE: 20210125
